FAERS Safety Report 16557307 (Version 1)
Quarter: 2019Q3

REPORT INFORMATION
  Report Type: Spontaneous
  Country: US (occurrence: US)
  Receive Date: 20190529
  Receipt Date: 20190529
  Transmission Date: 20191004
  Serious: Yes (Other)
  Sender: FDA-Public Use
  Company Number: None

PATIENT
  Age: 30 Year
  Sex: Male

DRUGS (1)
  1. COOKIE INFUSED WITH CBD [Suspect]
     Active Substance: CANNABIDIOL
     Dates: start: 20190511

REACTIONS (2)
  - Migraine [None]
  - Abdominal pain upper [None]

NARRATIVE: CASE EVENT DATE: 20190511
